FAERS Safety Report 9629304 (Version 1)
Quarter: 2013Q4

REPORT INFORMATION
  Report Type: Spontaneous
  Country: US (occurrence: US)
  Receive Date: 20131017
  Receipt Date: 20131017
  Transmission Date: 20140711
  Serious: No
  Sender: FDA-Public Use
  Company Number: US-ASTRAZENECA-2013SE68055

PATIENT
  Age: 59 Year
  Sex: Female
  Weight: 64.4 kg

DRUGS (7)
  1. CRESTOR [Suspect]
     Indication: BLOOD CHOLESTEROL ABNORMAL
     Dosage: 5MG
     Route: 048
     Dates: start: 201301, end: 201306
  2. CRESTOR [Suspect]
     Indication: BLOOD CHOLESTEROL ABNORMAL
     Dosage: THREE TIMES PER WEEK
     Route: 048
  3. NIASPAN [Concomitant]
     Dosage: NOT SPECIFIED DAILY
  4. ASPIRIN [Concomitant]
  5. FISH OIL TRIPLE STRENGTH [Concomitant]
     Dosage: NOT SPECIFIED BID
  6. CALCIUM [Concomitant]
     Dosage: NOT SPECIFIED DAILY
  7. VITAMIN D [Concomitant]
     Dosage: NOT SPECIFIED DAILY

REACTIONS (4)
  - Memory impairment [Recovered/Resolved]
  - Depressed mood [Recovered/Resolved]
  - Off label use [Recovered/Resolved]
  - Intentional drug misuse [Recovered/Resolved]
